FAERS Safety Report 16798715 (Version 1)
Quarter: 2019Q3

REPORT INFORMATION
  Report Type: Spontaneous
  Country: BE (occurrence: BE)
  Receive Date: 20190912
  Receipt Date: 20190912
  Transmission Date: 20191005
  Serious: No
  Sender: FDA-Public Use
  Company Number: BE-BEH-2019106152

PATIENT
  Age: 73 Year
  Sex: Female

DRUGS (1)
  1. ONE DOUBLE-ENDED NEEDLE FOR RECONSTITUTION/ADMINISTRATION SET(SANDOGLOBULINE) [Suspect]
     Active Substance: HUMAN IMMUNOGLOBULIN G
     Indication: WALDENSTROM^S MACROGLOBULINAEMIA
     Route: 042

REACTIONS (1)
  - Extravasation [Unknown]
